FAERS Safety Report 11002040 (Version 2)
Quarter: 2015Q2

REPORT INFORMATION
  Report Type: Spontaneous
  Country: US (occurrence: US)
  Receive Date: 20150408
  Receipt Date: 20150626
  Transmission Date: 20150821
  Serious: No
  Sender: FDA-Public Use
  Company Number: US-PFIZER INC-2015117134

PATIENT
  Age: 68 Year
  Sex: Female
  Weight: 59 kg

DRUGS (5)
  1. CELECOXIB. [Suspect]
     Active Substance: CELECOXIB
     Indication: CONDITION AGGRAVATED
  2. CELECOXIB. [Suspect]
     Active Substance: CELECOXIB
     Indication: PAIN IN EXTREMITY
     Dosage: 20 MG, 1X/DAY
     Dates: start: 20150523, end: 20150525
  3. CELEBREX [Suspect]
     Active Substance: CELECOXIB
     Indication: PAIN IN EXTREMITY
     Dosage: 20 MG, 1X/DAY
     Dates: start: 20150525, end: 20150609
  4. DILTIAZEM [Concomitant]
     Active Substance: DILTIAZEM
     Dosage: 240 ?G, DAILY
  5. DIGOXIN. [Concomitant]
     Active Substance: DIGOXIN
     Dosage: (125 MCG ONE A DAY ON FIRST DAY AND 250 MCG ONCE DAILY ON THE NEXT DAY) UNK

REACTIONS (7)
  - Hypertension [Unknown]
  - Drug ineffective [Unknown]
  - Condition aggravated [Recovered/Resolved]
  - Arthralgia [Recovered/Resolved]
  - Pain in extremity [Recovered/Resolved]
  - Joint swelling [Unknown]
  - Peripheral swelling [Unknown]
